FAERS Safety Report 11771459 (Version 10)
Quarter: 2018Q1

REPORT INFORMATION
  Report Type: Spontaneous
  Country: CA (occurrence: CA)
  Receive Date: 20151124
  Receipt Date: 20180322
  Transmission Date: 20180508
  Serious: Yes (Hospitalization, Other)
  Sender: FDA-Public Use
  Company Number: CA-ROCHE-1665436

PATIENT
  Age: 12 Year
  Sex: Female

DRUGS (5)
  1. XOLAIR [Suspect]
     Active Substance: OMALIZUMAB
     Route: 058
     Dates: start: 20170420, end: 20170420
  2. ZENHALE [Concomitant]
     Active Substance: FORMOTEROL FUMARATE\MOMETASONE FUROATE
  3. SALBUTAMOL [Concomitant]
     Active Substance: ALBUTEROL
  4. XOLAIR [Suspect]
     Active Substance: OMALIZUMAB
     Indication: ASTHMA
     Route: 058
     Dates: start: 20150506
  5. XOLAIR [Suspect]
     Active Substance: OMALIZUMAB
     Route: 058
     Dates: start: 20160929

REACTIONS (25)
  - Asthma [Not Recovered/Not Resolved]
  - Adrenal insufficiency [Unknown]
  - Lung infection [Unknown]
  - Concomitant disease aggravated [Unknown]
  - Perfume sensitivity [Unknown]
  - Viral infection [Unknown]
  - Pyrexia [Unknown]
  - Frustration tolerance decreased [Unknown]
  - Chest discomfort [Unknown]
  - Discomfort [Unknown]
  - Blood immunoglobulin E increased [Not Recovered/Not Resolved]
  - Drug ineffective [Unknown]
  - Pulmonary function test abnormal [Unknown]
  - Bronchopulmonary aspergillosis [Unknown]
  - Weight increased [Unknown]
  - Dyspnoea [Unknown]
  - Sensitivity to weather change [Unknown]
  - Insomnia [Unknown]
  - Cough [Unknown]
  - Cystic fibrosis [Unknown]
  - Fear [Unknown]
  - Smoke sensitivity [Unknown]
  - Wheezing [Unknown]
  - Forced expiratory volume decreased [Unknown]
  - Apathy [Unknown]

NARRATIVE: CASE EVENT DATE: 20160615
